FAERS Safety Report 8375008-4 (Version None)
Quarter: 2012Q2

REPORT INFORMATION
  Report Type: 
  Country: None (occurrence: None)
  Receive Date: 20120521
  Receipt Date: 20120508
  Transmission Date: 20120825
  Serious: Yes (Other)
  Sender: FDA-Public Use
  Company Number: CA-ROCHE-GNE319491

PATIENT
  Sex: Female

DRUGS (3)
  1. SYMBICORT [Concomitant]
  2. XOLAIR [Suspect]
     Indication: ASTHMA
     Dosage: 375 MG, Q2W
     Route: 058
     Dates: start: 20110503
  3. SINGULAIR [Concomitant]

REACTIONS (10)
  - INJECTION SITE HAEMATOMA [None]
  - GENERAL PHYSICAL HEALTH DETERIORATION [None]
  - OROPHARYNGEAL PAIN [None]
  - OSTEOPOROSIS [None]
  - MENSTRUATION IRREGULAR [None]
  - PAIN IN EXTREMITY [None]
  - DISTURBANCE IN ATTENTION [None]
  - HAEMORRHAGE [None]
  - FATIGUE [None]
  - HAEMATOMA [None]
